FAERS Safety Report 5256366-6 (Version None)
Quarter: 2007Q1

REPORT INFORMATION
  Report Type: 
  Country: None (occurrence: None)
  Receive Date: 20061204
  Receipt Date: 20060922
  Transmission Date: 20070707
  Serious: No
  Sender: FDA-Public Use
  Company Number: 2006-BP-10515BP

PATIENT
  Age: 48 Year
  Sex: Female

DRUGS (1)
  1. SPIRIVA [Suspect]
     Indication: ASTHMA
     Dosage: 18 MCG (18 MCG, 1 IN 1 D) IH
     Route: 055
     Dates: end: 20060831

REACTIONS (1)
  - INTRAOCULAR PRESSURE INCREASED [None]
